FAERS Safety Report 5130703-5 (Version None)
Quarter: 2006Q4

REPORT INFORMATION
  Report Type: 
  Country: None (occurrence: None)
  Receive Date: 20061019
  Receipt Date: 20061016
  Transmission Date: 20070319
  Serious: Yes (Other)
  Sender: FDA-Public Use
  Company Number: US-JNJFOC-20061003515

PATIENT
  Sex: Male
  Weight: 75.75 kg

DRUGS (5)
  1. IMODIUM A-D [Suspect]
  2. IMODIUM A-D [Suspect]
     Indication: IRRITABLE BOWEL SYNDROME
  3. ZYPREXA [Concomitant]
     Indication: SCHIZOPHRENIA
  4. DIAZEPAM [Concomitant]
     Indication: TARDIVE DYSKINESIA
  5. NEXIUM [Concomitant]
     Indication: HIATUS HERNIA

REACTIONS (1)
  - ASTHMA [None]
